FAERS Safety Report 9178588 (Version 1)
Quarter: 2012Q4

REPORT INFORMATION
  Report Type: 
  Country: US (occurrence: US)
  Receive Date: 20121029
  Receipt Date: 20121029
  Transmission Date: 20130627
  Serious: No
  Sender: FDA-Public Use
  Company Number: US-AMGEN-USASP2012053440

PATIENT
  Sex: Female

DRUGS (11)
  1. ENBREL [Suspect]
     Indication: PRODUCT USED FOR UNKNOWN INDICATION
     Dosage: 50 mg, qwk
     Route: 058
  2. CYMBALTA [Concomitant]
     Dosage: 60 mg, UNK
  3. FLEXERIL                           /00428402/ [Concomitant]
     Dosage: 10 mg, UNK
  4. TRAMADOL HCL [Concomitant]
     Dosage: 50 mg, UNK
  5. LISINOPRIL/HCTZ [Concomitant]
     Dosage: 25 mg, UNK
  6. TIZANIDINE [Concomitant]
     Dosage: 2 mg, UNK
  7. HYDROXYZINE HCL [Concomitant]
     Dosage: 25 mg, UNK
  8. APAP [Concomitant]
     Dosage: 500 mg, UNK
  9. GRALISE [Concomitant]
     Dosage: 600 mg, UNK
  10. ZIPSOR [Concomitant]
     Dosage: 25 mg, UNK
  11. CONZIP [Concomitant]
     Dosage: 100 mg, UNK

REACTIONS (4)
  - Muscle spasms [Unknown]
  - Insomnia [Unknown]
  - Muscle spasticity [Unknown]
  - Pain [Unknown]
